FAERS Safety Report 6156508-4 (Version None)
Quarter: 2009Q2

REPORT INFORMATION
  Report Type: 
  Country: None (occurrence: None)
  Receive Date: 20090413
  Receipt Date: 20090211
  Transmission Date: 20091009
  Serious: Yes (Death, Other)
  Sender: FDA-Public Use
  Company Number: OPIR20090006

PATIENT

DRUGS (1)
  1. OPANA [Suspect]
     Dates: end: 20090201

REACTIONS (1)
  - OVERDOSE [None]
